FAERS Safety Report 7242704-1 (Version None)
Quarter: 2011Q1

REPORT INFORMATION
  Report Type: 
  Country: None (occurrence: None)
  Receive Date: 20110125
  Receipt Date: 20110118
  Transmission Date: 20110831
  Serious: Yes (Other)
  Sender: FDA-Public Use
  Company Number: JP-PFIZER INC-2011004115

PATIENT
  Age: 87 Year
  Sex: Male

DRUGS (4)
  1. LYRICA [Suspect]
     Indication: POST HERPETIC NEURALGIA
     Dosage: 50 MG, 2X/DAY
     Route: 048
     Dates: start: 20100830
  2. TRYPTANOL [Concomitant]
  3. LYRICA [Suspect]
     Indication: SPINAL OSTEOARTHRITIS
     Dosage: 50 MG, 1X/DAY
     Route: 048
     Dates: start: 20101018
  4. LYRICA [Suspect]
     Dosage: 50 MG, 2X/DAY
     Route: 048
     Dates: start: 20101025, end: 20101129

REACTIONS (3)
  - CONTUSION [None]
  - LOSS OF CONSCIOUSNESS [None]
  - FALL [None]
